FAERS Safety Report 22393749 (Version 1)
Quarter: 2023Q2

REPORT INFORMATION
  Report Type: Spontaneous
  Country: IN (occurrence: IN)
  Receive Date: 20230601
  Receipt Date: 20230601
  Transmission Date: 20230722
  Serious: Yes (Death, Other)
  Sender: FDA-Public Use
  Company Number: IN-PFIZER INC-PV202300047237

PATIENT
  Age: 75 Year
  Sex: Female

DRUGS (1)
  1. CRIZOTINIB [Suspect]
     Active Substance: CRIZOTINIB
     Indication: Lung neoplasm malignant
     Dosage: 250 MG, 1X/DAY
     Route: 048

REACTIONS (9)
  - Respiratory failure [Fatal]
  - Immunodeficiency [Fatal]
  - Diabetes mellitus [Fatal]
  - Pneumonia [Unknown]
  - Dyspnoea [Unknown]
  - Vomiting [Unknown]
  - Dysphonia [Unknown]
  - Off label use [Unknown]
  - Product prescribing error [Unknown]
